FAERS Safety Report 16441589 (Version 1)
Quarter: 2019Q2

REPORT INFORMATION
  Report Type: Spontaneous
  Country: US (occurrence: US)
  Receive Date: 20190508
  Receipt Date: 20190508
  Transmission Date: 20190711
  Serious: No
  Sender: FDA-Public Use
  Company Number: None

PATIENT
  Age: 62 Year
  Sex: Female

DRUGS (1)
  1. REPATHA [Suspect]
     Active Substance: EVOLOCUMAB
     Indication: TYPE IIA HYPERLIPIDAEMIA
     Dosage: ?          OTHER FREQUENCY:EVERY 14 DAYS ;?
     Route: 058

REACTIONS (8)
  - Depression [None]
  - Anxiety [None]
  - Muscle spasms [None]
  - Abdominal discomfort [None]
  - Aphonia [None]
  - Gastrooesophageal reflux disease [None]
  - Nasopharyngitis [None]
  - Myalgia [None]

NARRATIVE: CASE EVENT DATE: 201904
